FAERS Safety Report 5614424-8 (Version None)
Quarter: 2008Q1

REPORT INFORMATION
  Report Type: 
  Country: None (occurrence: None)
  Receive Date: 20080130
  Receipt Date: 20080118
  Transmission Date: 20080703
  Serious: Yes (Hospitalization)
  Sender: FDA-Public Use
  Company Number: 2007-167327-NL

PATIENT
  Age: 36 Year
  Sex: Female

DRUGS (7)
  1. FOLLISTIM ORG 32489 [Suspect]
     Indication: OVARIAN DISORDER
     Dosage: 200 IU
     Route: 058
     Dates: start: 20071027, end: 20071104
  2. GANIRELIX ACETATE INJECTION [Concomitant]
  3. CHORIONIC GONADTROPIN [Concomitant]
  4. MARVELON [Suspect]
     Indication: OVARIAN DISORDER
     Dates: start: 20071002, end: 20071022
  5. PROGESTERONE [Concomitant]
  6. GANIRELIX ACETATE INJECTION [Concomitant]
  7. CHORIONIC GONADTROPIN [Concomitant]

REACTIONS (2)
  - COLITIS ULCERATIVE [None]
  - OVARIAN HYPERSTIMULATION SYNDROME [None]
